FAERS Safety Report 12341963 (Version 1)
Quarter: 2016Q2

REPORT INFORMATION
  Report Type: Spontaneous
  Country: AU (occurrence: AU)
  Receive Date: 20160506
  Receipt Date: 20160506
  Transmission Date: 20160815
  Serious: Yes (Death, Hospitalization)
  Sender: FDA-Public Use
  Company Number: AU-PURDUE PHARMA-GBR-2016-0035972

PATIENT
  Sex: Female

DRUGS (2)
  1. NORSPAN [Suspect]
     Active Substance: BUPRENORPHINE
     Dosage: 10 MCG, Q1H
     Route: 062
     Dates: end: 201512
  2. NORSPAN [Suspect]
     Active Substance: BUPRENORPHINE
     Indication: PAIN
     Dosage: 20 MCG, Q1H
     Route: 062
     Dates: start: 201512, end: 201512

REACTIONS (4)
  - Unresponsive to stimuli [Unknown]
  - Pain [Unknown]
  - Chest pain [Unknown]
  - Death [Fatal]

NARRATIVE: CASE EVENT DATE: 201512
